FAERS Safety Report 7657228-7 (Version None)
Quarter: 2011Q3

REPORT INFORMATION
  Report Type: 
  Country: None (occurrence: None)
  Receive Date: 20110804
  Receipt Date: 20110802
  Transmission Date: 20111222
  Serious: Yes (Hospitalization)
  Sender: FDA-Public Use
  Company Number: SE-SANOFI-AVENTIS-2011SA044121

PATIENT
  Sex: Male
  Weight: 106 kg

DRUGS (8)
  1. BISOPROLOL FUMARATE [Concomitant]
     Route: 065
  2. DIGOXIN [Concomitant]
     Route: 065
  3. SIMVASTATIN [Concomitant]
     Route: 065
  4. WARFARIN [Concomitant]
     Route: 065
  5. DRONEDARONE [Suspect]
     Indication: ATRIAL FIBRILLATION
     Route: 048
     Dates: start: 20110427
  6. FUROSEMIDE [Concomitant]
     Route: 065
  7. ENALAPRIL MALEATE [Concomitant]
     Route: 065
  8. CANDESARTAN CILEXETIL [Concomitant]
     Route: 065

REACTIONS (1)
  - RENAL FAILURE [None]
